FAERS Safety Report 4629206-3 (Version None)
Quarter: 2005Q2

REPORT INFORMATION
  Report Type: 
  Country: None (occurrence: None)
  Receive Date: 20050405
  Receipt Date: 20050114
  Transmission Date: 20051028
  Serious: Yes (Hospitalization)
  Sender: FDA-Public Use
  Company Number: M-05-020

PATIENT
  Sex: Male
  Weight: 91.6266 kg

DRUGS (7)
  1. AMIODARONE HCL [Suspect]
     Indication: ARRHYTHMIA
     Dosage: 100 MG QD PO
     Route: 048
     Dates: start: 20050101
  2. AMIODARONE HCL [Suspect]
     Indication: ARRHYTHMIA
     Dosage: 200 MG QD PO
     Route: 048
     Dates: start: 20040801, end: 20050101
  3. AMIODARONE HCL [Suspect]
     Indication: ARRHYTHMIA
     Dosage: 400 MG QD PO
     Route: 048
     Dates: start: 20040301, end: 20040801
  4. PLAVIX [Concomitant]
  5. LIPITOR [Concomitant]
  6. DIOVAN [Concomitant]
  7. ASPIRIN (CONTIN) [Concomitant]

REACTIONS (6)
  - HALO VISION [None]
  - PAIN IN EXTREMITY [None]
  - PHOTOPHOBIA [None]
  - VISION BLURRED [None]
  - VISUAL ACUITY REDUCED [None]
  - VISUAL DISTURBANCE [None]
